FAERS Safety Report 5657587-0 (Version None)
Quarter: 2008Q1

REPORT INFORMATION
  Report Type: 
  Country: None (occurrence: None)
  Receive Date: 20080307
  Receipt Date: 20080307
  Transmission Date: 20080703
  Serious: Yes (Disabling)
  Sender: FDA-Public Use
  Company Number: None

PATIENT
  Sex: Male
  Weight: 99 kg

DRUGS (3)
  1. PLAVIX [Suspect]
     Dosage: 75MG DAILY PO
     Route: 048
  2. ASPIRIN [Suspect]
     Dosage: 81MG DAILY PO
     Route: 048
  3. NABUMETONE [Concomitant]

REACTIONS (1)
  - RECTAL HAEMORRHAGE [None]
